FAERS Safety Report 19128742 (Version 1)
Quarter: 2021Q2

REPORT INFORMATION
  Report Type: Spontaneous
  Country: DE (occurrence: DE)
  Receive Date: 20210413
  Receipt Date: 20210413
  Transmission Date: 20210717
  Serious: Yes (Other)
  Sender: FDA-Public Use
  Company Number: DE-PFIZER INC-2021386037

PATIENT
  Age: 39 Year
  Sex: Male

DRUGS (9)
  1. NORDAZEPAM [Suspect]
     Active Substance: NORDAZEPAM
  2. OXAZEPAM. [Suspect]
     Active Substance: OXAZEPAM
  3. LEVOMETHADONE [Suspect]
     Active Substance: LEVOMETHADONE
  4. THC DROPS STENOCARE [Suspect]
     Active Substance: CANNABIS SATIVA FLOWERING TOP
  5. CLONAZEPAM. [Suspect]
     Active Substance: CLONAZEPAM
  6. PREGABALIN. [Suspect]
     Active Substance: PREGABALIN
  7. TEMAZEPAM. [Suspect]
     Active Substance: TEMAZEPAM
  8. ALCOHOL. [Suspect]
     Active Substance: ALCOHOL
  9. DIAZEPAM. [Suspect]
     Active Substance: DIAZEPAM

REACTIONS (3)
  - Drug screen positive [Unknown]
  - Aggression [Unknown]
  - Drug abuse [Unknown]
